FAERS Safety Report 5228702-8 (Version None)
Quarter: 2007Q1

REPORT INFORMATION
  Report Type: 
  Country: None (occurrence: None)
  Receive Date: 20070205
  Receipt Date: 20070123
  Transmission Date: 20070707
  Serious: Yes (Hospitalization)
  Sender: FDA-Public Use
  Company Number: PHFR2007GB00646

PATIENT
  Sex: Male

DRUGS (1)
  1. ZOMETA [Suspect]
     Indication: PROSTATE CANCER
     Dosage: ONE DOSE

REACTIONS (4)
  - ARTHRITIS [None]
  - ARTHROPATHY [None]
  - KNEE OPERATION [None]
  - MALAISE [None]
